FAERS Safety Report 9541688 (Version 1)
Quarter: 2013Q3

REPORT INFORMATION
  Report Type: Spontaneous
  Country: US (occurrence: US)
  Receive Date: 20130923
  Receipt Date: 20130923
  Transmission Date: 20140515
  Serious: Yes (Other)
  Sender: FDA-Public Use
  Company Number: US-SANOFI-AVENTIS-2013SA091571

PATIENT
  Age: 85 Year
  Sex: Female

DRUGS (5)
  1. LANTUS SOLOSTAR [Suspect]
     Indication: TYPE 2 DIABETES MELLITUS
     Dosage: DOSE:38 UNIT(S)
     Route: 058
     Dates: start: 201306
  2. HUMALOG [Suspect]
     Route: 065
  3. GLIPIZIDE [Suspect]
     Route: 065
  4. METFORMIN [Suspect]
     Route: 065
  5. SOLOSTAR [Concomitant]
     Dates: start: 201306

REACTIONS (3)
  - Lung neoplasm malignant [Unknown]
  - Hypoglycaemia [Unknown]
  - Blood glucose increased [Unknown]
